FAERS Safety Report 20355930 (Version 2)
Quarter: 2022Q1

REPORT INFORMATION
  Report Type: Spontaneous
  Country: PT (occurrence: PT)
  Receive Date: 20220120
  Receipt Date: 20220127
  Transmission Date: 20220423
  Serious: Yes (Hospitalization, Other)
  Sender: FDA-Public Use
  Company Number: PT-PFIZER INC-202200057600

PATIENT
  Age: 14 Year
  Sex: Female

DRUGS (2)
  1. METHOTREXATE SODIUM [Suspect]
     Active Substance: METHOTREXATE SODIUM
     Indication: Post lumbar puncture syndrome
     Dosage: UNK UNK, SINGLE
     Route: 037
  2. METHOTREXATE SODIUM [Suspect]
     Active Substance: METHOTREXATE SODIUM
     Indication: Philadelphia positive acute lymphocytic leukaemia

REACTIONS (2)
  - Neurotoxicity [Recovered/Resolved]
  - Leukoencephalopathy [Recovered/Resolved]
